FAERS Safety Report 11517114 (Version 3)
Quarter: 2015Q4

REPORT INFORMATION
  Report Type: Spontaneous
  Country: JP (occurrence: JP)
  Receive Date: 20150917
  Receipt Date: 20151001
  Transmission Date: 20160304
  Serious: Yes (Other)
  Sender: FDA-Public Use
  Company Number: JP-EISAI MEDICAL RESEARCH-EC-2015-010458

PATIENT
  Age: 74 Year
  Sex: Female
  Weight: 54 kg

DRUGS (17)
  1. ARICEPT [Suspect]
     Active Substance: DONEPEZIL HYDROCHLORIDE
     Indication: DEMENTIA ALZHEIMER^S TYPE
     Route: 048
     Dates: start: 20150615, end: 20150830
  2. ARICEPT [Suspect]
     Active Substance: DONEPEZIL HYDROCHLORIDE
     Route: 048
     Dates: start: 20150831, end: 20150903
  3. ABILIFY [Suspect]
     Active Substance: ARIPIPRAZOLE
     Indication: HALLUCINATION
     Route: 048
     Dates: start: 20150706, end: 20150802
  4. ABILIFY [Suspect]
     Active Substance: ARIPIPRAZOLE
     Route: 048
     Dates: start: 20150803, end: 20150830
  5. LUNESTA [Concomitant]
     Active Substance: ESZOPICLONE
     Indication: INSOMNIA
     Route: 048
     Dates: start: 20150212, end: 20150831
  6. ZOLOFT [Concomitant]
     Active Substance: SERTRALINE HYDROCHLORIDE
     Indication: DEPRESSION
     Route: 048
     Dates: start: 20150518, end: 20150831
  7. ABILIFY [Suspect]
     Active Substance: ARIPIPRAZOLE
     Indication: DELUSION
     Route: 048
     Dates: start: 20150518, end: 20150705
  8. RISPERDAL [Suspect]
     Active Substance: RISPERIDONE
     Route: 048
     Dates: start: 20150831, end: 20150903
  9. RISPERDAL [Suspect]
     Active Substance: RISPERIDONE
     Route: 048
     Dates: start: 20150912, end: 20150912
  10. RISPERDAL [Suspect]
     Active Substance: RISPERIDONE
     Indication: HALLUCINATION
     Route: 048
     Dates: start: 20150218, end: 20150323
  11. RISPERDAL [Suspect]
     Active Substance: RISPERIDONE
     Indication: DELUSION
     Route: 048
     Dates: start: 20150212, end: 20150217
  12. ARICEPT [Suspect]
     Active Substance: DONEPEZIL HYDROCHLORIDE
     Route: 048
     Dates: start: 20150912, end: 20150912
  13. ABILIFY [Suspect]
     Active Substance: ARIPIPRAZOLE
     Route: 048
     Dates: start: 20150831, end: 20150903
  14. RISPERDAL [Suspect]
     Active Substance: RISPERIDONE
     Dates: start: 20150324, end: 20150420
  15. RISPERDAL [Suspect]
     Active Substance: RISPERIDONE
     Route: 048
     Dates: start: 20150421, end: 20150517
  16. RHYTHMY [Concomitant]
     Active Substance: RILMAZAFONE HYDROCHLORIDE
     Indication: INSOMNIA
     Route: 048
     Dates: start: 20150212, end: 20150831
  17. ABILIFY [Suspect]
     Active Substance: ARIPIPRAZOLE
     Route: 048
     Dates: start: 20150912, end: 20150912

REACTIONS (1)
  - Tremor [Recovered/Resolved]

NARRATIVE: CASE EVENT DATE: 20150903
